FAERS Safety Report 20581994 (Version 1)
Quarter: 2022Q1

REPORT INFORMATION
  Report Type: Spontaneous
  Country: CN (occurrence: None)
  Receive Date: 20220311
  Receipt Date: 20220311
  Transmission Date: 20220423
  Serious: Yes (Life-Threatening, Hospitalization, Other)
  Sender: FDA-Public Use
  Company Number: 2022A107035

PATIENT
  Age: 7850 Day
  Sex: Female
  Weight: 57 kg

DRUGS (1)
  1. DAPAGLIFLOZIN [Suspect]
     Active Substance: DAPAGLIFLOZIN
     Indication: Diabetes mellitus
     Route: 048
     Dates: start: 20220120, end: 20220304

REACTIONS (4)
  - Condition aggravated [Unknown]
  - Ketoacidosis [Recovered/Resolved]
  - Diabetic ketoacidotic hyperglycaemic coma [Unknown]
  - Intentional dose omission [Unknown]

NARRATIVE: CASE EVENT DATE: 20220205
